FAERS Safety Report 7913334-0 (Version None)
Quarter: 2011Q4

REPORT INFORMATION
  Report Type: 
  Country: None (occurrence: None)
  Receive Date: 20111114
  Receipt Date: 20111104
  Transmission Date: 20120403
  Serious: Yes (Other)
  Sender: FDA-Public Use
  Company Number: US-ASTRAZENECA-2011SE47695

PATIENT
  Age: 75 Year
  Sex: Female
  Weight: 70.8 kg

DRUGS (16)
  1. AMBIEN [Concomitant]
     Dosage: HALF TO ONE TABLET AT BEDTIME AS REQUIRED
  2. VITAMIN D [Concomitant]
  3. ALPRAZOLAM [Concomitant]
     Dosage: 1-2 TABLETS QD AS REQUIRED
  4. LOPRESSOR [Concomitant]
  5. LEVOTHYROXINE SODIUM [Concomitant]
  6. ASPIR 81 [Concomitant]
  7. ASCORBIC ACID [Concomitant]
  8. CALCIUM GLUCONATE WITH VITAMIN E [Concomitant]
  9. EXFORGE [Concomitant]
     Indication: ESSENTIAL HYPERTENSION
     Dosage: 5/320 MG, ONE TABLET DAILY
  10. MULTI VITA BETS FLUORIDE [Concomitant]
  11. FERROUS SULFATE TAB [Concomitant]
  12. ZOFRAN [Concomitant]
     Indication: NAUSEA
  13. JANUVIA [Concomitant]
     Route: 048
  14. NEXIUM [Suspect]
     Indication: GASTROOESOPHAGEAL REFLUX DISEASE
     Route: 048
     Dates: start: 20080626
  15. ZOLOFT [Concomitant]
  16. LEVEMIR [Concomitant]
     Dosage: 100 UNIT/ML, 60 UNITS TWO TIMES A DAY

REACTIONS (21)
  - GASTROOESOPHAGEAL REFLUX DISEASE [None]
  - FALL [None]
  - RENAL FAILURE CHRONIC [None]
  - LACERATION [None]
  - SYNCOPE [None]
  - ANXIETY [None]
  - CERVICOBRACHIAL SYNDROME [None]
  - HYPERLIPIDAEMIA [None]
  - HYPERTENSION [None]
  - DIABETIC NEUROPATHY [None]
  - BLOOD GLUCOSE DECREASED [None]
  - TYPE 1 DIABETES MELLITUS [None]
  - ANKLE FRACTURE [None]
  - INJURY [None]
  - OSTEOARTHRITIS [None]
  - HYPOGLYCAEMIA [None]
  - GLYCOSYLATED HAEMOGLOBIN INCREASED [None]
  - INSOMNIA [None]
  - DRUG DOSE OMISSION [None]
  - ANAEMIA VITAMIN B12 DEFICIENCY [None]
  - VITAMIN D DEFICIENCY [None]
